FAERS Safety Report 7986217-8 (Version None)
Quarter: 2011Q4

REPORT INFORMATION
  Report Type: 
  Country: None (occurrence: None)
  Receive Date: 20111216
  Receipt Date: 20110513
  Transmission Date: 20120403
  Serious: Yes (Other)
  Sender: FDA-Public Use
  Company Number: US-GLAXOSMITHKLINE-B0719692A

PATIENT
  Age: 59 Year
  Sex: Female

DRUGS (1)
  1. AVANDIA [Suspect]
     Indication: DIABETES MELLITUS
     Route: 048
     Dates: start: 20020719, end: 20051128

REACTIONS (4)
  - HEART RATE IRREGULAR [None]
  - HEART RATE INCREASED [None]
  - SYNCOPE [None]
  - PALPITATIONS [None]
